FAERS Safety Report 16123974 (Version 1)
Quarter: 2019Q1

REPORT INFORMATION
  Report Type: Spontaneous
  Country: JP (occurrence: JP)
  Receive Date: 20190327
  Receipt Date: 20190327
  Transmission Date: 20190418
  Serious: Yes (Hospitalization)
  Sender: FDA-Public Use
  Company Number: JP-009507513-1903JPN011697

PATIENT
  Age: 88 Year
  Sex: Male

DRUGS (4)
  1. HYPOCA [Suspect]
     Active Substance: BARNIDIPINE HYDROCHLORIDE
     Indication: HYPERTENSION
     Dosage: 10 MILLIGRAM PER DAY IN THE MORNING
     Route: 048
     Dates: start: 20160112, end: 201903
  2. NEUROTROPIN [Concomitant]
     Active Substance: NEUROTROPIN
     Indication: LUMBAR SPINAL STENOSIS
     Dosage: INTRAVENOUS BOLOUS (IVB)
     Route: 042
  3. BONALON [Suspect]
     Active Substance: ALENDRONATE SODIUM
     Indication: OSTEOPOROSIS
     Dosage: 35 MILLIGRAM PER WEEK
     Route: 048
     Dates: start: 20170214, end: 201903
  4. ONEALFA [Concomitant]
     Active Substance: ALFACALCIDOL
     Indication: OSTEOPOROSIS
     Dosage: 1.0 MICROGRAM PER DAY IN THE MORNING
     Route: 048
     Dates: start: 20170214, end: 201903

REACTIONS (1)
  - Rhabdomyolysis [Recovered/Resolved]

NARRATIVE: CASE EVENT DATE: 20190301
